FAERS Safety Report 23574885 (Version 2)
Quarter: 2024Q1

REPORT INFORMATION
  Report Type: Spontaneous
  Country: CN (occurrence: CN)
  Receive Date: 20240228
  Receipt Date: 20240307
  Transmission Date: 20240409
  Serious: Yes (Death, Other)
  Sender: FDA-Public Use
  Company Number: CN-Jiangsu Hengrui Medicine Co., Ltd.-2153776

PATIENT
  Age: 62 Year
  Sex: Male
  Weight: 75 kg

DRUGS (10)
  1. IRINOTECAN HYDROCHLORIDE [Suspect]
     Active Substance: IRINOTECAN HYDROCHLORIDE
     Dates: start: 20240105, end: 20240112
  2. CODEINE PHOSPHATE W/DICLOFENAC SODIUM [Concomitant]
     Route: 048
     Dates: start: 20230910, end: 20240117
  3. TROPISETRON HYDROCHLORIDE [Concomitant]
     Active Substance: TROPISETRON HYDROCHLORIDE
     Route: 041
     Dates: start: 20240124, end: 20240124
  4. OMEPRAZOLE SODIUM [Concomitant]
     Active Substance: OMEPRAZOLE SODIUM
     Route: 041
     Dates: start: 20240112, end: 20240112
  5. ATROPINE SULFATE [Concomitant]
     Active Substance: ATROPINE SULFATE
     Route: 058
     Dates: start: 20240112, end: 20240112
  6. NIFEDIPINE [Concomitant]
     Active Substance: NIFEDIPINE
     Route: 048
     Dates: start: 20231212, end: 20240117
  7. OMEPRAZOLE [Concomitant]
     Active Substance: OMEPRAZOLE
     Route: 048
     Dates: start: 20231114, end: 20240117
  8. VITAMIN B12 [Concomitant]
     Active Substance: CYANOCOBALAMIN
     Route: 002
     Dates: start: 20231110, end: 20240117
  9. LIDOCAINE HYDROCHLORIDE [Concomitant]
     Active Substance: LIDOCAINE HYDROCHLORIDE
     Route: 002
     Dates: start: 20231110, end: 20240117
  10. ESTAZOLAM [Concomitant]
     Active Substance: ESTAZOLAM
     Route: 048
     Dates: start: 20230914, end: 20240117

REACTIONS (3)
  - Septic shock [Fatal]
  - Product use in unapproved indication [Unknown]
  - Myelosuppression [Recovering/Resolving]

NARRATIVE: CASE EVENT DATE: 20240117
